FAERS Safety Report 7921673 (Version 2)
Quarter: 2013Q1

REPORT INFORMATION
  Report Type: Spontaneous
  Country: US (occurrence: US)
  Receive Date: 20110429
  Receipt Date: 20130104
  Transmission Date: 20140127
  Serious: Yes (Hospitalization)
  Sender: FDA-Public Use
  Company Number: US-ASTRAZENECA-2010SE50412

PATIENT
  Age: 27075 Day
  Sex: Female
  Weight: 90.7 kg

DRUGS (9)
  1. NEXIUM [Suspect]
     Indication: GASTROOESOPHAGEAL REFLUX DISEASE
     Route: 048
     Dates: start: 201003
  2. PULMICORT FLEXHALER [Suspect]
     Indication: BRONCHITIS
     Route: 055
     Dates: start: 2010
  3. PULMICORT FLEXHALER [Suspect]
     Indication: ASTHMA
     Route: 055
     Dates: start: 2010
  4. PULMICORT FLEXHALER [Suspect]
     Indication: BRONCHITIS
     Route: 055
     Dates: start: 20121227
  5. PULMICORT FLEXHALER [Suspect]
     Indication: ASTHMA
     Route: 055
     Dates: start: 20121227
  6. ENDEROL [Concomitant]
  7. METFORMIN [Concomitant]
  8. LASIX [Concomitant]
  9. FLONASE [Concomitant]

REACTIONS (6)
  - Cough [Unknown]
  - Upper-airway cough syndrome [Unknown]
  - Choking [Unknown]
  - Dyspnoea [Unknown]
  - Malaise [Unknown]
  - Off label use [Unknown]
